FAERS Safety Report 9176595 (Version 1)
Quarter: 2013Q1

REPORT INFORMATION
  Report Type: Spontaneous
  Country: US (occurrence: None)
  Receive Date: 20130320
  Receipt Date: 20130320
  Transmission Date: 20140127
  Serious: Yes (Other)
  Sender: FDA-Public Use
  Company Number: None

PATIENT
  Age: 24 Year
  Sex: Female
  Weight: 47.63 kg

DRUGS (1)
  1. MUCINEX DM MAXIMUM STRENGTH [Suspect]
     Dates: start: 20130315, end: 20130315

REACTIONS (12)
  - Mydriasis [None]
  - Nausea [None]
  - Retching [None]
  - Dizziness [None]
  - Somnolence [None]
  - Heart rate increased [None]
  - Anxiety [None]
  - Vision blurred [None]
  - Tremor [None]
  - Abdominal pain upper [None]
  - Chest pain [None]
  - Decreased appetite [None]
